FAERS Safety Report 21385401 (Version 1)
Quarter: 2022Q3

REPORT INFORMATION
  Report Type: Spontaneous
  Country: US (occurrence: US)
  Receive Date: 20220928
  Receipt Date: 20220928
  Transmission Date: 20221027
  Serious: No
  Sender: FDA-Public Use
  Company Number: US-Calliditas-2022CAL00339

PATIENT
  Age: 43 Year
  Sex: Female

DRUGS (1)
  1. TARPEYO [Suspect]
     Active Substance: BUDESONIDE
     Indication: IgA nephropathy
     Dosage: 16MG (4MG CAPSULES) ONCE DAILY
     Route: 048
     Dates: start: 20220816

REACTIONS (5)
  - Abdominal distension [Recovering/Resolving]
  - Energy increased [Unknown]
  - Mood swings [Unknown]
  - Intermenstrual bleeding [Recovered/Resolved]
  - Oropharyngeal pain [Unknown]
